FAERS Safety Report 4527256-9 (Version None)
Quarter: 2004Q4

REPORT INFORMATION
  Report Type: 
  Country: None (occurrence: None)
  Receive Date: 20041214
  Receipt Date: 20041214
  Transmission Date: 20050328
  Serious: Yes (Hospitalization)
  Sender: FDA-Public Use
  Company Number: None

PATIENT
  Age: 74 Year
  Sex: Female
  Weight: 70.9 kg

DRUGS (7)
  1. CAPECITABINE [Suspect]
     Indication: RECTAL CANCER
     Dosage: 1500 MG
     Dates: start: 20041027, end: 20041130
  2. RADIATION [Suspect]
  3. TYLENOL (CAPLET) [Concomitant]
  4. AQUAPHOR [Concomitant]
  5. CIPRO [Concomitant]
  6. IMODIUM [Concomitant]
  7. A+D OINTMENT [Concomitant]

REACTIONS (3)
  - DYSPNOEA [None]
  - PULMONARY EMBOLISM [None]
  - RESPIRATORY ARREST [None]
